FAERS Safety Report 4334605-3 (Version None)
Quarter: 2004Q1

REPORT INFORMATION
  Report Type: 
  Country: None (occurrence: None)
  Receive Date: 20040329
  Receipt Date: 20031226
  Transmission Date: 20041129
  Serious: No
  Sender: FDA-Public Use
  Company Number: 03P-163-0245971-00

PATIENT
  Age: 60 Year
  Sex: Female
  Weight: 47.6277 kg

DRUGS (12)
  1. HUMIRA [Suspect]
     Indication: RHEUMATOID ARTHRITIS
     Dosage: 40 MG, 1 IN 2 WK, SUBCUTANEOUS
     Route: 058
     Dates: start: 20030801
  2. LEFLUNOMIDE [Concomitant]
  3. CELECOXIB [Concomitant]
  4. ATENOLOL [Concomitant]
  5. PREDNISONE [Concomitant]
  6. LANSOPRAZOLE [Concomitant]
  7. GABAPENTIN [Concomitant]
  8. AMITRIPTYLINE HCL [Concomitant]
  9. CALCIUM [Concomitant]
  10. ALENDRONATE SODIUM [Concomitant]
  11. MULTI-VITAMINS [Concomitant]
  12. IRON [Concomitant]

REACTIONS (1)
  - BRONCHITIS [None]
